FAERS Safety Report 9992167 (Version 3)
Quarter: 2015Q2

REPORT INFORMATION
  Report Type: Spontaneous
  Country: US (occurrence: US)
  Receive Date: 20140310
  Receipt Date: 20150611
  Transmission Date: 20150821
  Serious: No
  Sender: FDA-Public Use
  Company Number: US-ASTELLAS-2013US012823

PATIENT
  Age: 84 Year
  Sex: Male

DRUGS (1)
  1. XTANDI [Suspect]
     Active Substance: ENZALUTAMIDE
     Indication: PROSTATE CANCER
     Dosage: 160 MG, DAILY
     Route: 048
     Dates: start: 20130707

REACTIONS (16)
  - Pain in extremity [Unknown]
  - Fatigue [Unknown]
  - Bone pain [Unknown]
  - Hot flush [Unknown]
  - Paraesthesia [Unknown]
  - Headache [Unknown]
  - Neuropathy peripheral [Unknown]
  - Dizziness [Unknown]
  - Arthralgia [Unknown]
  - Asthenia [Unknown]
  - Prostatic specific antigen increased [Unknown]
  - Circadian rhythm sleep disorder [Unknown]
  - Back pain [Unknown]
  - Myalgia [Unknown]
  - Insomnia [Unknown]
  - Drug ineffective [Unknown]

NARRATIVE: CASE EVENT DATE: 20150129
